FAERS Safety Report 11808071 (Version 1)
Quarter: 2015Q4

REPORT INFORMATION
  Report Type: Spontaneous
  Country: US (occurrence: US)
  Receive Date: 20151207
  Receipt Date: 20151207
  Transmission Date: 20160305
  Serious: No
  Sender: FDA-Public Use
  Company Number: US-ENDO PHARMACEUTICALS INC.-201503040

PATIENT
  Sex: Male
  Weight: 127.12 kg

DRUGS (6)
  1. FISH OIL [Concomitant]
     Active Substance: FISH OIL
  2. CIALIS [Concomitant]
     Active Substance: TADALAFIL
  3. SYNTHROID [Concomitant]
     Active Substance: LEVOTHYROXINE SODIUM
     Dosage: 2 TABLETS DAILY
  4. MULTIVITAMINS [Concomitant]
     Active Substance: VITAMINS
  5. TESTIM [Suspect]
     Active Substance: TESTOSTERONE
     Route: 062
     Dates: start: 201502
  6. DOXEPIN [Concomitant]
     Active Substance: DOXEPIN

REACTIONS (1)
  - Rash pruritic [Unknown]

NARRATIVE: CASE EVENT DATE: 2014
